FAERS Safety Report 18595119 (Version 1)
Quarter: 2020Q4

REPORT INFORMATION
  Report Type: Spontaneous
  Country: US (occurrence: US)
  Receive Date: 20201209
  Receipt Date: 20201209
  Transmission Date: 20210114
  Serious: Yes (Hospitalization, Other)
  Sender: FDA-Public Use
  Company Number: US-LUPIN PHARMACEUTICALS INC.-2020-09854

PATIENT
  Age: 57 Year
  Sex: Male

DRUGS (2)
  1. GABAPENTIN. [Suspect]
     Active Substance: GABAPENTIN
     Indication: MERALGIA PARAESTHETICA
     Dosage: 600 MILLIGRAM, QID
     Route: 048
  2. PREGABALIN. [Suspect]
     Active Substance: PREGABALIN
     Indication: MERALGIA PARAESTHETICA
     Dosage: UNK
     Route: 065

REACTIONS (4)
  - Sexual dysfunction [Recovered/Resolved]
  - Cognitive disorder [Recovering/Resolving]
  - Drug intolerance [Recovering/Resolving]
  - Somnolence [Recovering/Resolving]
